FAERS Safety Report 16904217 (Version 4)
Quarter: 2020Q1

REPORT INFORMATION
  Report Type: Spontaneous
  Country: JP (occurrence: JP)
  Receive Date: 20191010
  Receipt Date: 20200115
  Transmission Date: 20200409
  Serious: Yes (Death, Hospitalization, Other)
  Sender: FDA-Public Use
  Company Number: JP-JNJFOC-20190929476

PATIENT
  Age: 81 Year
  Sex: Male
  Weight: 52 kg

DRUGS (10)
  1. CABAZITAXEL ACETONATE [Suspect]
     Active Substance: CABAZITAXEL
     Indication: PRODUCT USED FOR UNKNOWN INDICATION
     Dosage: UNKNOWN
     Route: 065
  2. METOCLOPRAMIDE. [Concomitant]
     Active Substance: METOCLOPRAMIDE
     Indication: GASTRIC ULCER HAEMORRHAGE
     Route: 065
     Dates: start: 20190606, end: 20190917
  3. LANSOPRAZOLE. [Concomitant]
     Active Substance: LANSOPRAZOLE
     Indication: GASTRIC ULCER HAEMORRHAGE
     Route: 065
     Dates: start: 20190723, end: 20190917
  4. ERLEADA [Suspect]
     Active Substance: APALUTAMIDE
     Indication: HORMONE-REFRACTORY PROSTATE CANCER
     Route: 048
     Dates: start: 201905, end: 20190628
  5. DISTIGMINE BROMIDE [Concomitant]
     Active Substance: DISTIGMINE BROMIDE
     Indication: NEUROGENIC BLADDER
     Route: 065
     Dates: end: 20190916
  6. RUPAFIN [Concomitant]
     Active Substance: RUPATADINE FUMARATE
     Indication: PRODUCT USED FOR UNKNOWN INDICATION
     Route: 065
     Dates: start: 20190916
  7. REBAMIPIDE [Concomitant]
     Active Substance: REBAMIPIDE
     Indication: GASTRIC ULCER HAEMORRHAGE
     Route: 065
     Dates: start: 20190606, end: 20190916
  8. ETODOLAC. [Concomitant]
     Active Substance: ETODOLAC
     Indication: SPINAL LIGAMENT OSSIFICATION
     Route: 048
     Dates: end: 20190914
  9. ERLEADA [Suspect]
     Active Substance: APALUTAMIDE
     Route: 048
     Dates: start: 20190815, end: 20190916
  10. SILODOSIN. [Concomitant]
     Active Substance: SILODOSIN
     Indication: BENIGN PROSTATIC HYPERPLASIA
     Route: 065
     Dates: end: 20190916

REACTIONS (5)
  - Respiratory failure [Fatal]
  - Diarrhoea [Unknown]
  - Clostridium difficile colitis [Unknown]
  - Rash [Recovering/Resolving]
  - Prerenal failure [Unknown]

NARRATIVE: CASE EVENT DATE: 20190628
